FAERS Safety Report 7592515-2 (Version None)
Quarter: 2011Q3

REPORT INFORMATION
  Report Type: 
  Country: None (occurrence: None)
  Receive Date: 20110706
  Receipt Date: 20110628
  Transmission Date: 20111222
  Serious: Yes (Hospitalization, Other)
  Sender: FDA-Public Use
  Company Number: US-PFIZER INC-US-WYE-H06586608

PATIENT
  Age: 22 Year
  Sex: Male

DRUGS (5)
  1. LITHIUM [Suspect]
     Indication: BIPOLAR I DISORDER
     Dosage: 600 MG, 2X/DAY
     Route: 048
  2. FLUOXETINE [Suspect]
     Indication: BIPOLAR I DISORDER
     Dosage: 20 MG, 1X/DAY
     Route: 048
  3. CLONAZEPAM [Concomitant]
     Route: 048
  4. DEXTROMETHORPHAN HYDROBROMIDE [Suspect]
     Indication: DRUG ABUSE
     Dosage: SEVERAL BOTTLES
     Route: 048
  5. DEXTROMETHORPHAN HYDROBROMIDE [Suspect]
     Dosage: OVER 900 MG SPORADICALLY
     Route: 048

REACTIONS (9)
  - SEROTONIN SYNDROME [None]
  - DRUG ABUSE [None]
  - HALLUCINATION [None]
  - INTENTIONAL OVERDOSE [None]
  - DISSOCIATION [None]
  - DRUG INTERACTION [None]
  - MENTAL DISORDER [None]
  - MEDICATION ERROR [None]
  - PALPITATIONS [None]
